FAERS Safety Report 14695108 (Version 3)
Quarter: 2019Q1

REPORT INFORMATION
  Report Type: Report from Study
  Country: US (occurrence: US)
  Receive Date: 20180329
  Receipt Date: 20190117
  Transmission Date: 20190417
  Serious: No
  Sender: FDA-Public Use
  Company Number: PHEH2018US011969

PATIENT
  Sex: Female

DRUGS (1)
  1. GLEEVEC [Suspect]
     Active Substance: IMATINIB MESYLATE
     Indication: PRODUCT USED FOR UNKNOWN INDICATION
     Route: 065

REACTIONS (8)
  - Insomnia [Unknown]
  - Gait inability [Unknown]
  - Rhinorrhoea [Unknown]
  - Thyroid disorder [Unknown]
  - Weight decreased [Unknown]
  - Peripheral swelling [Unknown]
  - Skin discolouration [Unknown]
  - Synovial cyst [Unknown]
